FAERS Safety Report 4847071-6 (Version None)
Quarter: 2005Q4

REPORT INFORMATION
  Report Type: 
  Country: None (occurrence: None)
  Receive Date: 20051207
  Receipt Date: 20051201
  Transmission Date: 20060501
  Serious: Yes (Hospitalization)
  Sender: FDA-Public Use
  Company Number: US-BRISTOL-MYERS SQUIBB COMPANY-13202213

PATIENT
  Age: 66 Year
  Sex: Female

DRUGS (10)
  1. CETUXIMAB [Suspect]
     Indication: NON-SMALL CELL LUNG CANCER
     Dosage: 430 MG INITIATED ON 06-OCT-2005.
     Route: 042
  2. CARBOPLATIN [Suspect]
     Indication: NON-SMALL CELL LUNG CANCER
     Dosage: INITIATED ON 13-OCT-2005.
     Route: 042
  3. ASPIRIN [Concomitant]
     Dates: start: 20040401
  4. CALCIUM GLUCONATE [Concomitant]
     Dates: start: 20021001
  5. ELAVIL [Concomitant]
     Dates: start: 19810101
  6. FISH OIL [Concomitant]
     Dates: start: 20041001
  7. PREMARIN [Concomitant]
     Dates: start: 19810101
  8. PROVERA [Concomitant]
     Dates: start: 19810101
  9. XANAX [Concomitant]
     Dates: start: 20050930
  10. ZOCOR [Concomitant]
     Dates: start: 20041001

REACTIONS (1)
  - PULMONARY EMBOLISM [None]
